FAERS Safety Report 7312840-X (Version None)
Quarter: 2011Q1

REPORT INFORMATION
  Report Type: 
  Country: None (occurrence: None)
  Receive Date: 20110224
  Receipt Date: 20110214
  Transmission Date: 20110831
  Serious: Yes (Death, Other)
  Sender: FDA-Public Use
  Company Number: CN-WATSON-2011-02054

PATIENT
  Age: 53 Year
  Sex: Female

DRUGS (3)
  1. ALCOHOL                            /00002101/ [Suspect]
     Indication: OVERDOSE
     Dosage: UNK
  2. CHLORPROMAZINE HCL [Suspect]
     Indication: OVERDOSE
     Dosage: UNK
     Route: 048
  3. LITHIUM CARBONATE [Suspect]
     Indication: OVERDOSE
     Dosage: UNK

REACTIONS (2)
  - BRAIN OEDEMA [None]
  - OVERDOSE [None]
